FAERS Safety Report 10221364 (Version 1)
Quarter: 2014Q2

REPORT INFORMATION
  Report Type: Spontaneous
  Country: US (occurrence: US)
  Receive Date: 20140606
  Receipt Date: 20140606
  Transmission Date: 20141212
  Serious: Yes (Other)
  Sender: FDA-Public Use
  Company Number: US-SA-2014SA073179

PATIENT
  Age: 71 Year
  Sex: Female

DRUGS (3)
  1. MULTAQ [Suspect]
     Indication: ATRIAL FIBRILLATION
     Dosage: STARTED 3-4 YEARS
     Route: 048
  2. THYROID PREPARATIONS [Concomitant]
  3. WARFARIN [Concomitant]

REACTIONS (1)
  - Atrial fibrillation [Not Recovered/Not Resolved]
